FAERS Safety Report 6541348-4 (Version None)
Quarter: 2010Q1

REPORT INFORMATION
  Report Type: 
  Country: None (occurrence: None)
  Receive Date: 20100118
  Receipt Date: 20100105
  Transmission Date: 20100710
  Serious: Yes (Other)
  Sender: FDA-Public Use
  Company Number: PHEH2008US09448

PATIENT
  Sex: Female

DRUGS (27)
  1. ZOMETA [Suspect]
     Dosage: 4 MG, QMO
     Route: 042
     Dates: start: 20030818
  2. AREDIA [Suspect]
     Dosage: 90MG MONTHLY
     Dates: start: 20031201
  3. CHEMOTHERAPEUTICS NOS [Concomitant]
  4. HERCEPTIN [Concomitant]
     Dosage: UNK
     Dates: start: 20030801
  5. STEROIDS NOS [Concomitant]
  6. PREVACID [Concomitant]
  7. OXYCONTIN [Concomitant]
  8. VICODIN [Concomitant]
  9. TYLENOL (CAPLET) [Concomitant]
  10. TAXOTERE [Concomitant]
     Dosage: UNK
     Dates: start: 20030801
  11. RADIATION THERAPY [Concomitant]
  12. ZOLADEX [Concomitant]
  13. ARIMIDEX [Concomitant]
  14. FEMARA [Concomitant]
  15. TAMOXIFEN CITRATE [Concomitant]
     Dosage: 20 MG, QD
  16. MOTRIN [Concomitant]
     Indication: PAIN
  17. PERCOCET [Concomitant]
     Indication: PAIN
  18. XELODA [Concomitant]
     Dosage: 500 MG BY MOUTH
  19. VIOXX [Concomitant]
     Dosage: UNK
  20. PEN V ^GENERAL DRUG HOUSE^ [Concomitant]
     Dosage: 500 MG BY MOUTH 1 TAB EVERY 6 HOURS
  21. CYTOXAN [Concomitant]
  22. ADRIAMYCIN PFS [Concomitant]
  23. NORCO [Concomitant]
  24. TYLENOL W/ CODEINE NO. 3 [Concomitant]
  25. MORPHINE [Concomitant]
  26. VIOXX [Concomitant]
  27. DECADRON                                /CAN/ [Concomitant]

REACTIONS (25)
  - AGRANULOCYTOSIS [None]
  - ANXIETY [None]
  - BACK PAIN [None]
  - BODY TEMPERATURE INCREASED [None]
  - BONE DISORDER [None]
  - BONE PAIN [None]
  - CENTRAL VENOUS CATHETERISATION [None]
  - COUGH [None]
  - EMOTIONAL DISTRESS [None]
  - EPISTAXIS [None]
  - INFECTION [None]
  - INJURY [None]
  - METASTASES TO LUNG [None]
  - NAUSEA [None]
  - NECK PAIN [None]
  - ORAL SURGERY [None]
  - OSTEONECROSIS [None]
  - PAIN [None]
  - PAIN IN EXTREMITY [None]
  - PHYSICAL DISABILITY [None]
  - PLEURAL EFFUSION [None]
  - SCAR [None]
  - TOOTH EXTRACTION [None]
  - TOOTHACHE [None]
  - VOMITING [None]
